FAERS Safety Report 9421432 (Version 1)
Quarter: 2013Q3

REPORT INFORMATION
  Report Type: Spontaneous
  Country: DE (occurrence: DE)
  Receive Date: 20130726
  Receipt Date: 20130726
  Transmission Date: 20140515
  Serious: Yes (Other)
  Sender: FDA-Public Use
  Company Number: DE-AMGEN-DEUSP2013041031

PATIENT
  Age: 66 Year
  Sex: Female
  Weight: 50 kg

DRUGS (5)
  1. ENBREL [Suspect]
     Indication: PRODUCT USED FOR UNKNOWN INDICATION
     Dosage: 25 MG, 2 TIMES/WK
     Route: 065
     Dates: start: 200711, end: 201210
  2. ENBREL [Suspect]
     Dosage: 25 MG, QWK
     Route: 065
     Dates: start: 201210, end: 201303
  3. PRESOMEN [Concomitant]
     Dosage: 0.6, UNK
  4. PRESOMEN [Concomitant]
     Dosage: 1/25, UNK
  5. SUMATRIPTAN [Concomitant]
     Indication: MIGRAINE
     Dosage: 50 MG, UNK

REACTIONS (3)
  - Arthropathy [Unknown]
  - Mental disorder [Unknown]
  - Alopecia [Not Recovered/Not Resolved]
